FAERS Safety Report 5136268-6 (Version None)
Quarter: 2006Q4

REPORT INFORMATION
  Report Type: 
  Country: None (occurrence: None)
  Receive Date: 20061027
  Receipt Date: 20061018
  Transmission Date: 20070319
  Serious: Yes (Hospitalization, Other)
  Sender: FDA-Public Use
  Company Number: US-JNJFOC-20061004086

PATIENT
  Sex: Male

DRUGS (15)
  1. REMICADE [Suspect]
     Dosage: 150 MG
     Route: 042
  2. REMICADE [Suspect]
     Dosage: 2 DOSES  ON UNSPECIFIED DATES
     Route: 042
  3. REMICADE [Suspect]
     Indication: GRAFT VERSUS HOST DISEASE
     Route: 042
  4. AMLODIPINE [Concomitant]
  5. CHLOROTHIAZIDE [Concomitant]
     Indication: BLOOD PRESSURE
  6. TACROLIMUS [Concomitant]
  7. CELLCEPT [Concomitant]
     Indication: GRAFT VERSUS HOST DISEASE
  8. PREDNISONE TAB [Concomitant]
     Indication: GRAFT VERSUS HOST DISEASE
  9. ENTOCORT [Concomitant]
     Indication: GRAFT VERSUS HOST DISEASE
  10. ZANTAC [Concomitant]
  11. DILANTIN [Concomitant]
  12. ACYCLOVIR [Concomitant]
  13. FLUCONAZOLE [Concomitant]
  14. PULMICORT [Concomitant]
  15. PENTAMADINE [Concomitant]

REACTIONS (3)
  - ALPHA TUMOUR NECROSIS FACTOR INCREASED [None]
  - ENTEROCOCCAL BACTERAEMIA [None]
  - KLEBSIELLA BACTERAEMIA [None]
